FAERS Safety Report 5813774-X (Version None)
Quarter: 2008Q3

REPORT INFORMATION
  Report Type: 
  Country: None (occurrence: None)
  Receive Date: 20080717
  Receipt Date: 20080710
  Transmission Date: 20090109
  Serious: Yes (Other)
  Sender: FDA-Public Use
  Company Number: PHHY2008SE13755

PATIENT

DRUGS (1)
  1. ZELNORM [Suspect]
     Indication: CONSTIPATION
     Dosage: UNK
     Dates: start: 20080101, end: 20080401

REACTIONS (2)
  - ARTERIAL STENOSIS [None]
  - TRANSIENT ISCHAEMIC ATTACK [None]
